FAERS Safety Report 6490620-5 (Version None)
Quarter: 2009Q4

REPORT INFORMATION
  Report Type: 
  Country: None (occurrence: None)
  Receive Date: 20091124
  Receipt Date: 20090721
  Transmission Date: 20100525
  Serious: Yes (Hospitalization)
  Sender: FDA-Public Use
  Company Number: 287267

PATIENT
  Sex: Female

DRUGS (3)
  1. HERCEPTIN [Suspect]
     Indication: BREAST CANCER
  2. TAXOTERE [Concomitant]
  3. CARBOPLATIN [Concomitant]

REACTIONS (3)
  - DYSPNOEA [None]
  - PNEUMONIA [None]
  - UNEVALUABLE EVENT [None]
